FAERS Safety Report 23244962 (Version 2)
Quarter: 2023Q4

REPORT INFORMATION
  Report Type: Spontaneous
  Country: US (occurrence: US)
  Receive Date: 20231130
  Receipt Date: 20231220
  Transmission Date: 20240109
  Serious: No
  Sender: FDA-Public Use
  Company Number: US-MTPC-MTDA2023-0027559

PATIENT
  Sex: Male

DRUGS (6)
  1. RADICAVA [Suspect]
     Active Substance: EDARAVONE
     Indication: Upper motor neurone lesion
     Dosage: 105 MILLIGRAM, QD X 10 DAYS MAINTENANCE
     Route: 048
     Dates: end: 202307
  2. RADICAVA [Suspect]
     Active Substance: EDARAVONE
     Indication: Upper motor neurone lesion
     Dosage: 105 MILLIGRAM, QD X 10 DAYS MAINTENANCE
     Route: 048
     Dates: end: 202307
  3. RADICAVA [Suspect]
     Active Substance: EDARAVONE
     Indication: Amyotrophic lateral sclerosis
     Dosage: 105 MILLIGRAM, QD X 14 DAYS
     Route: 048
     Dates: start: 20221216
  4. RADICAVA [Suspect]
     Active Substance: EDARAVONE
     Indication: Amyotrophic lateral sclerosis
     Dosage: 105 MILLIGRAM, QD X 14 DAYS
     Route: 048
     Dates: start: 20221216
  5. RELYVRIO [Concomitant]
     Active Substance: SODIUM PHENYLBUTYRATE\TAURURSODIOL
     Indication: Product used for unknown indication
     Dosage: 3-1 GRAM PACKET, BID
     Route: 048
     Dates: start: 20221025, end: 20230306
  6. RILUZOLE [Concomitant]
     Active Substance: RILUZOLE
     Indication: Product used for unknown indication
     Dosage: 50 MILLIGRAM, BID
     Route: 048
     Dates: start: 20230517

REACTIONS (2)
  - Drug ineffective [Unknown]
  - Off label use [Not Recovered/Not Resolved]

NARRATIVE: CASE EVENT DATE: 20130101
